FAERS Safety Report 17563894 (Version 1)
Quarter: 2020Q1

REPORT INFORMATION
  Report Type: Report from Study
  Country: CA (occurrence: CA)
  Receive Date: 20200320
  Receipt Date: 20200320
  Transmission Date: 20200409
  Serious: Yes (Other)
  Sender: FDA-Public Use
  Company Number: CA-BRISTOL-MYERS SQUIBB COMPANY-BMS-2020-009770

PATIENT
  Age: 24 Year
  Sex: Female

DRUGS (1)
  1. ABATACEPT [Suspect]
     Active Substance: ABATACEPT
     Indication: RHEUMATOID ARTHRITIS
     Dosage: 500 MILLIGRAM, QMO
     Route: 042
     Dates: start: 20160816

REACTIONS (9)
  - Influenza [Unknown]
  - Cough [Unknown]
  - Pyrexia [Unknown]
  - Pulmonary oedema [Recovering/Resolving]
  - Bronchospasm [Unknown]
  - Bronchitis [Recovering/Resolving]
  - Pneumonia [Unknown]
  - Influenza like illness [Unknown]
  - Infection [Unknown]

NARRATIVE: CASE EVENT DATE: 201912
